FAERS Safety Report 9470329 (Version 1)
Quarter: 2013Q3

REPORT INFORMATION
  Report Type: Spontaneous
  Country: US (occurrence: US)
  Receive Date: 20130822
  Receipt Date: 20130822
  Transmission Date: 20140515
  Serious: No
  Sender: FDA-Public Use
  Company Number: US-SANOFI-AVENTIS-2012SA085226

PATIENT
  Age: 80 Year
  Sex: Female

DRUGS (9)
  1. MULTAQ [Suspect]
     Indication: ATRIAL FIBRILLATION
     Route: 048
     Dates: start: 20120903
  2. CHOLESTEROL- AND TRIGLYCERIDE REDUCERS [Suspect]
     Route: 065
     Dates: end: 2012
  3. METOPROLOL [Concomitant]
     Indication: CARDIAC DISORDER
     Route: 065
     Dates: end: 2012
  4. METOPROLOL [Concomitant]
     Indication: CARDIAC DISORDER
     Route: 065
     Dates: start: 2012
  5. COUMADIN [Concomitant]
     Dosage: 2.5-5MG DEPENDING ON INR
  6. ASPIRIN [Concomitant]
  7. VITAMIN C [Concomitant]
  8. GLUCOSAMINE [Concomitant]
  9. CHONDROITIN SULFATE [Concomitant]

REACTIONS (3)
  - Dizziness [Not Recovered/Not Resolved]
  - Cold sweat [Not Recovered/Not Resolved]
  - Dyspnoea [Not Recovered/Not Resolved]
